FAERS Safety Report 12561210 (Version 1)
Quarter: 2016Q3

REPORT INFORMATION
  Report Type: Spontaneous
  Country: CH (occurrence: CH)
  Receive Date: 20160715
  Receipt Date: 20160715
  Transmission Date: 20161109
  Serious: Yes (Hospitalization, Other)
  Sender: FDA-Public Use
  Company Number: CH-SA-2016SA124944

PATIENT
  Age: 25 Year
  Sex: Female

DRUGS (1)
  1. AUBAGIO [Suspect]
     Active Substance: TERIFLUNOMIDE
     Indication: MULTIPLE SCLEROSIS
     Route: 048
     Dates: start: 2014, end: 20160401

REACTIONS (4)
  - Multiple sclerosis relapse [Unknown]
  - Headache [Unknown]
  - Subarachnoid haemorrhage [Unknown]
  - Vasospasm [Unknown]

NARRATIVE: CASE EVENT DATE: 2015
